FAERS Safety Report 16966512 (Version 2)
Quarter: 2019Q4

REPORT INFORMATION
  Report Type: Spontaneous
  Country: ES (occurrence: ES)
  Receive Date: 20191028
  Receipt Date: 20191118
  Transmission Date: 20200122
  Serious: Yes (Other)
  Sender: FDA-Public Use
  Company Number: NVSC2019ES014470

PATIENT
  Age: 66 Year
  Sex: Male

DRUGS (5)
  1. EXJADE [Suspect]
     Active Substance: DEFERASIROX
     Indication: MYELODYSPLASTIC SYNDROME
     Dosage: 720 MG (CHELATION) (14MG / KG / DAY)
     Route: 065
     Dates: start: 20190606
  2. EXJADE [Suspect]
     Active Substance: DEFERASIROX
     Dosage: 360 MG, QD
     Route: 065
     Dates: start: 20190814, end: 20190904
  3. EXJADE [Suspect]
     Active Substance: DEFERASIROX
     Dosage: 760 MG, QD
     Route: 065
     Dates: start: 20190904
  4. 5-AZACYTIDINE [Concomitant]
     Active Substance: AZACITIDINE
     Indication: PRODUCT USED FOR UNKNOWN INDICATION
     Dosage: UNK
     Route: 065
     Dates: start: 201906
  5. EXJADE [Suspect]
     Active Substance: DEFERASIROX
     Indication: MYELOPROLIFERATIVE NEOPLASM
     Dosage: 360 MG
     Route: 065
     Dates: end: 20190629

REACTIONS (7)
  - Hyperbilirubinaemia [Unknown]
  - Chills [Recovered/Resolved]
  - Pyrexia [Recovered/Resolved]
  - Neutropenia [Unknown]
  - Atrial fibrillation [Unknown]
  - Abdominal pain [Unknown]
  - Toothache [Unknown]

NARRATIVE: CASE EVENT DATE: 20190621
